FAERS Safety Report 18803983 (Version 2)
Quarter: 2022Q1

REPORT INFORMATION
  Report Type: Spontaneous
  Country: US (occurrence: US)
  Receive Date: 20210129
  Receipt Date: 20220223
  Transmission Date: 20220423
  Serious: No
  Sender: FDA-Public Use
  Company Number: US-UCBSA-2020019892

PATIENT

DRUGS (1)
  1. LEVETIRACETAM [Suspect]
     Active Substance: LEVETIRACETAM
     Indication: Epilepsy
     Dosage: UNKNOWN DOSE

REACTIONS (5)
  - Behaviour disorder [Unknown]
  - Sedation [Unknown]
  - Nightmare [Unknown]
  - Rash [Unknown]
  - Cognitive disorder [Unknown]
